FAERS Safety Report 5072998-2 (Version None)
Quarter: 2006Q3

REPORT INFORMATION
  Report Type: 
  Country: None (occurrence: None)
  Receive Date: 20060802
  Receipt Date: 20060720
  Transmission Date: 20061208
  Serious: Yes (Hospitalization, Other)
  Sender: FDA-Public Use
  Company Number: 2006029492

PATIENT
  Age: 35 Year
  Sex: Male
  Weight: 95 kg

DRUGS (2)
  1. SULFASALAZINE [Suspect]
     Indication: CROHN'S DISEASE
     Dosage: 2 GRAM (1 GRAM, 2 IN 1 D) ORAL
     Route: 048
     Dates: start: 20050809, end: 20060222
  2. PANTOPRAZOLE SODIUM [Suspect]
     Indication: ILL-DEFINED DISORDER

REACTIONS (4)
  - BILE DUCT CANCER [None]
  - CHOLECYSTITIS [None]
  - HEPATITIS [None]
  - INFERIOR VENA CAVAL OCCLUSION [None]
